FAERS Safety Report 7471155-X (Version None)
Quarter: 2011Q2

REPORT INFORMATION
  Report Type: 
  Country: None (occurrence: None)
  Receive Date: 20110510
  Receipt Date: 20110504
  Transmission Date: 20111010
  Serious: Yes (Other)
  Sender: FDA-Public Use
  Company Number: US-TYCO HEALTHCARE/MALLINCKRODT-T201100773

PATIENT

DRUGS (3)
  1. SYNTHROID [Concomitant]
     Indication: THYROID DISORDER
     Dosage: 100 MG, 3 X WEEKLY
  2. VICODIN [Concomitant]
     Indication: PAIN
     Dosage: ONE TABLET AS NEEDED
  3. MORPHINE [Suspect]
     Indication: SCIATICA
     Dosage: 60 MG, QID,  PRN
     Route: 048
     Dates: start: 20090101

REACTIONS (3)
  - FORMICATION [None]
  - WITHDRAWAL SYNDROME [None]
  - DRUG INEFFECTIVE [None]
